FAERS Safety Report 24625850 (Version 2)
Quarter: 2025Q3

REPORT INFORMATION
  Report Type: Spontaneous
  Country: US (occurrence: US)
  Receive Date: 20241115
  Receipt Date: 20250825
  Transmission Date: 20251021
  Serious: No
  Sender: ANI
  Company Number: US-ANIPHARMA-2024-US-055792

PATIENT
  Age: 33 Year
  Sex: Female

DRUGS (6)
  1. CORTICOTROPIN [Suspect]
     Active Substance: CORTICOTROPIN
     Indication: Iridocyclitis
     Route: 058
  2. NEXPLANON [Concomitant]
     Active Substance: ETONOGESTREL
  3. FISH OIL [Concomitant]
     Active Substance: FISH OIL
  4. VITAMINS [Concomitant]
     Active Substance: VITAMINS
  5. TEA [Concomitant]
     Active Substance: TEA LEAF
  6. CURCUMIN [Concomitant]
     Active Substance: CURCUMIN

REACTIONS (2)
  - Therapeutic product effect incomplete [Not Recovered/Not Resolved]
  - Product dose omission issue [Not Recovered/Not Resolved]

NARRATIVE: CASE EVENT DATE: 20250304
